FAERS Safety Report 8588636-8 (Version None)
Quarter: 2012Q3

REPORT INFORMATION
  Report Type: 
  Country: None (occurrence: None)
  Receive Date: 20120813
  Receipt Date: 20120807
  Transmission Date: 20120928
  Serious: Yes (Hospitalization)
  Sender: FDA-Public Use
  Company Number: PHHY2012DE061894

PATIENT
  Age: 77 Year
  Sex: Female
  Weight: 55 kg

DRUGS (9)
  1. ACTRAPID [Concomitant]
  2. BERLINSULIN [Concomitant]
  3. ASPIRIN [Concomitant]
  4. SIMVASTATIN [Concomitant]
  5. METOPROLOL [Concomitant]
  6. ZOLEDRONOC ACID [Suspect]
     Indication: OSTEOPOROSIS POSTMENOPAUSAL
     Dosage: 5 MG, ONCE YEARLY
     Route: 042
     Dates: start: 20120522
  7. AMITRIPTYLINE HCL [Concomitant]
  8. TORSEMIDE [Concomitant]
  9. HYDROCHLOROTHIAZIDE [Concomitant]

REACTIONS (9)
  - WEIGHT DECREASED [None]
  - FATIGUE [None]
  - PERIPHERAL VASCULAR DISORDER [None]
  - DIZZINESS [None]
  - ARTHRALGIA [None]
  - BONE PAIN [None]
  - HYPERHIDROSIS [None]
  - OEDEMA PERIPHERAL [None]
  - NAUSEA [None]
